FAERS Safety Report 5110015-6 (Version None)
Quarter: 2006Q3

REPORT INFORMATION
  Report Type: 
  Country: None (occurrence: None)
  Receive Date: 20060921
  Receipt Date: 20060914
  Transmission Date: 20061208
  Serious: Yes (Life-Threatening, Hospitalization)
  Sender: FDA-Public Use
  Company Number: DE-BRACCO-BRO-010557

PATIENT
  Sex: Female

DRUGS (1)
  1. PROHANCE [Suspect]
     Route: 042
     Dates: start: 20060911, end: 20060911

REACTIONS (3)
  - CIRCULATORY COLLAPSE [None]
  - COUGH [None]
  - DYSPNOEA [None]
